FAERS Safety Report 13277494 (Version 6)
Quarter: 2017Q2

REPORT INFORMATION
  Report Type: Report from Study
  Country: US (occurrence: US)
  Receive Date: 20170228
  Receipt Date: 20170425
  Transmission Date: 20170830
  Serious: Yes (Death, Hospitalization, Other)
  Sender: FDA-Public Use
  Company Number: US-ALEXION PHARMACEUTICALS INC.-A201701833

PATIENT
  Age: 86 Year
  Sex: Female

DRUGS (2)
  1. SOLIRIS [Suspect]
     Active Substance: ECULIZUMAB
     Indication: HAEMOLYTIC URAEMIC SYNDROME
     Dosage: 900 MG, QW
     Route: 042
  2. SOLIRIS [Suspect]
     Active Substance: ECULIZUMAB
     Dosage: 1200 MG, Q2W
     Route: 042
     Dates: end: 20170331

REACTIONS (12)
  - Renal failure [Fatal]
  - Hallucination [Not Recovered/Not Resolved]
  - Blood bilirubin abnormal [Not Recovered/Not Resolved]
  - Splenic embolism [Recovered/Resolved]
  - Drug effect incomplete [Unknown]
  - Blood lactate dehydrogenase abnormal [Not Recovered/Not Resolved]
  - Haemoglobin decreased [Unknown]
  - Haematocrit abnormal [Not Recovered/Not Resolved]
  - Urine output decreased [Not Recovered/Not Resolved]
  - Confusional state [Unknown]
  - Blood urea abnormal [Not Recovered/Not Resolved]
  - Blood creatinine abnormal [Not Recovered/Not Resolved]

NARRATIVE: CASE EVENT DATE: 20170307
